FAERS Safety Report 8502791 (Version 2)
Quarter: 2012Q4

REPORT INFORMATION
  Report Type: 
  Country: US (occurrence: US)
  Receive Date: 20120410
  Receipt Date: 20121024
  Transmission Date: 20130627
  Serious: Yes (Hospitalization, Disabling, Other)
  Sender: FDA-Public Use
  Company Number: US-MERCK-1204USA01069

PATIENT

DRUGS (5)
  1. FOSAMAX [Suspect]
     Indication: OSTEOPOROSIS
     Dosage: 70 mg, qw
     Route: 048
     Dates: start: 2004, end: 2009
  2. FOSAMAX [Suspect]
     Indication: OSTEOPENIA
  3. BONIVA [Concomitant]
     Indication: OSTEOPOROSIS
  4. CALCIUM CARBONATE [Concomitant]
     Indication: OSTEOPOROSIS
     Dosage: 500 mg, tid
     Route: 048
  5. CALCIUM CARBONATE [Concomitant]
     Indication: OSTEOPENIA

REACTIONS (24)
  - Femur fracture [Not Recovered/Not Resolved]
  - Open reduction of fracture [Unknown]
  - Femoral neck fracture [Not Recovered/Not Resolved]
  - Open reduction of fracture [Unknown]
  - Fall [Unknown]
  - Atrial fibrillation [Unknown]
  - Haemoglobin decreased [Unknown]
  - Haemorrhagic anaemia [Unknown]
  - Post procedural haemorrhage [Unknown]
  - Hypermetropia [Unknown]
  - Presbyopia [Unknown]
  - Pinguecula [Unknown]
  - Colon adenoma [Unknown]
  - Spondylolysis [Unknown]
  - Intervertebral disc degeneration [Unknown]
  - Spondylolisthesis [Unknown]
  - Hysterectomy [Unknown]
  - Migraine [Not Recovered/Not Resolved]
  - Spinal osteoarthritis [Unknown]
  - Blood cholesterol increased [Unknown]
  - Back pain [Not Recovered/Not Resolved]
  - Pain in extremity [Not Recovered/Not Resolved]
  - Arthralgia [Unknown]
  - Drug ineffective [Unknown]
